FAERS Safety Report 14993287 (Version 1)
Quarter: 2018Q2

REPORT INFORMATION
  Report Type: Spontaneous
  Country: FR (occurrence: FR)
  Receive Date: 20180610
  Receipt Date: 20180610
  Transmission Date: 20180711
  Serious: Yes (Life-Threatening, Hospitalization, Other)
  Sender: FDA-Public Use
  Company Number: FR-BAXTER-2018BAX016340

PATIENT
  Age: 67 Year
  Sex: Female

DRUGS (4)
  1. BICART 1250 [Suspect]
     Active Substance: SODIUM BICARBONATE
     Indication: LACTIC ACIDOSIS
     Route: 065
  2. IRBESARTAN. [Concomitant]
     Active Substance: IRBESARTAN
     Indication: HYPERTENSION
     Dosage: 300 MG
     Route: 065
  3. GLUCOSE [Suspect]
     Active Substance: DEXTROSE
     Indication: PRODUCT USED FOR UNKNOWN INDICATION
     Dosage: 20 ML OF 30%
     Route: 065
  4. METFORMIN [Suspect]
     Active Substance: METFORMIN HYDROCHLORIDE
     Indication: TYPE 2 DIABETES MELLITUS
     Route: 065

REACTIONS (4)
  - Lactic acidosis [Recovering/Resolving]
  - Stupor [Recovering/Resolving]
  - Agitation [Recovering/Resolving]
  - Shock [Recovering/Resolving]
